FAERS Safety Report 18183533 (Version 3)
Quarter: 2020Q3

REPORT INFORMATION
  Report Type: Spontaneous
  Country: MY (occurrence: MY)
  Receive Date: 20200822
  Receipt Date: 20200916
  Transmission Date: 20201103
  Serious: Yes (Life-Threatening, Hospitalization, Other)
  Sender: FDA-Public Use
  Company Number: MY-B.I. PHARMACEUTICALS,INC./RIDGEFIELD-2020-BI-043154

PATIENT
  Age: 89 Year
  Sex: Male
  Weight: 50 kg

DRUGS (1)
  1. PRADAXA [Suspect]
     Active Substance: DABIGATRAN ETEXILATE MESYLATE
     Indication: ATRIAL FIBRILLATION
     Dates: start: 2014, end: 202008

REACTIONS (6)
  - Acute myocardial infarction [Unknown]
  - Renal failure [Not Recovered/Not Resolved]
  - Subdural haemorrhage [Unknown]
  - Prostatomegaly [Not Recovered/Not Resolved]
  - Fall [Not Recovered/Not Resolved]
  - General physical condition abnormal [Not Recovered/Not Resolved]

NARRATIVE: CASE EVENT DATE: 202008
